FAERS Safety Report 16419067 (Version 1)
Quarter: 2019Q2

REPORT INFORMATION
  Report Type: Report from Study
  Country: US (occurrence: US)
  Receive Date: 20190612
  Receipt Date: 20190612
  Transmission Date: 20190711
  Serious: Yes (Death, Other)
  Sender: FDA-Public Use
  Company Number: US-JAZZ-2019-US-007966

PATIENT
  Age: 14 Year
  Sex: Female

DRUGS (1)
  1. DEFITELIO [Suspect]
     Active Substance: DEFIBROTIDE SODIUM
     Indication: PROPHYLAXIS
     Dosage: 6.25 MG/KG, QID

REACTIONS (4)
  - Venoocclusive disease [Unknown]
  - Off label use [Unknown]
  - Haemorrhage [Unknown]
  - Pneumonia fungal [Fatal]

NARRATIVE: CASE EVENT DATE: 2018
